FAERS Safety Report 9030414 (Version 3)
Quarter: 2013Q1

REPORT INFORMATION
  Report Type: Spontaneous
  Country: IE (occurrence: IE)
  Receive Date: 20130122
  Receipt Date: 20130201
  Transmission Date: 20140127
  Serious: Yes (Other)
  Sender: FDA-Public Use
  Company Number: IE-AMGEN-IRLSP2013003194

PATIENT
  Age: 85 Year
  Sex: Male
  Weight: 76.19 kg

DRUGS (5)
  1. PROLIA [Suspect]
     Indication: OSTEOPOROSIS
     Dosage: ONCE
     Route: 058
     Dates: start: 20130115
  2. HYDROCORTISONE [Concomitant]
     Indication: ADDISON^S DISEASE
     Dosage: 30 MG, QD
     Route: 048
     Dates: start: 1992
  3. NEBILET [Concomitant]
     Indication: HYPERTENSION
     Dosage: UNK
     Route: 048
  4. FLORINEF [Concomitant]
     Indication: ADDISON^S DISEASE
     Dosage: 0.1 MG, BID
     Route: 048
  5. ATACAND [Concomitant]
     Indication: HYPERTENSION
     Dosage: 12 MG, BID
     Route: 048

REACTIONS (5)
  - Haematemesis [Recovered/Resolved]
  - Hypersensitivity [Unknown]
  - Depressed level of consciousness [Unknown]
  - Dysstasia [Unknown]
  - Vomiting [Recovered/Resolved]
